FAERS Safety Report 10169163 (Version 1)
Quarter: 2014Q2

REPORT INFORMATION
  Report Type: Spontaneous
  Country: US (occurrence: US)
  Receive Date: 20140513
  Receipt Date: 20140513
  Transmission Date: 20141212
  Serious: No
  Sender: FDA-Public Use
  Company Number: US-TARO-2014P1002620

PATIENT
  Age: 8 Year
  Sex: Female
  Weight: 30.39 kg

DRUGS (2)
  1. CETIRIZINE HCL CHILDREN ORAL SOLUTION ALLERGY 1MG/ML (SUGARFREE GRAPE) [Suspect]
     Indication: COUGH
     Route: 048
     Dates: start: 20140322
  2. BENADRYL [Concomitant]
     Dates: start: 20140323

REACTIONS (2)
  - Pyrexia [Not Recovered/Not Resolved]
  - Off label use [Unknown]
